FAERS Safety Report 23890902 (Version 1)
Quarter: 2024Q2

REPORT INFORMATION
  Report Type: Spontaneous
  Country: US (occurrence: US)
  Receive Date: 20240523
  Receipt Date: 20240523
  Transmission Date: 20240716
  Serious: No
  Sender: FDA-Public Use
  Company Number: US-MYLANLABS-2024M1039776

PATIENT
  Age: 80 Year
  Sex: Male

DRUGS (1)
  1. FENTANYL TRANSDERMAL SYSTEM [Suspect]
     Active Substance: FENTANYL
     Indication: Product used for unknown indication
     Dosage: 25 MICROGRAM
     Route: 062
     Dates: start: 2024

REACTIONS (4)
  - Application site haemorrhage [Unknown]
  - Application site pruritus [Unknown]
  - Application site pain [Unknown]
  - Product formulation issue [Unknown]

NARRATIVE: CASE EVENT DATE: 20240101
